FAERS Safety Report 12947321 (Version 1)
Quarter: 2016Q4

REPORT INFORMATION
  Report Type: Spontaneous
  Country: IT (occurrence: IT)
  Receive Date: 20161116
  Receipt Date: 20161116
  Transmission Date: 20170207
  Serious: Yes (Hospitalization)
  Sender: FDA-Public Use
  Company Number: IT-PFIZER INC-2016530211

PATIENT
  Age: 69 Year
  Sex: Female
  Weight: 88 kg

DRUGS (1)
  1. ADRIBLASTINA [Suspect]
     Active Substance: DOXORUBICIN HYDROCHLORIDE
     Indication: BREAST CANCER STAGE I
     Dosage: 100 MG, CYCLIC
     Route: 040
     Dates: start: 20161104, end: 20161104

REACTIONS (3)
  - Injection site erythema [Recovering/Resolving]
  - Administration site extravasation [Recovering/Resolving]
  - Injection site pain [Recovering/Resolving]

NARRATIVE: CASE EVENT DATE: 20161104
